FAERS Safety Report 8586535-9 (Version None)
Quarter: 2012Q3

REPORT INFORMATION
  Report Type: 
  Country: None (occurrence: None)
  Receive Date: 20120810
  Receipt Date: 20120802
  Transmission Date: 20120928
  Serious: Yes (Other)
  Sender: FDA-Public Use
  Company Number: JP-AMGEN-JPNSP2010003765

PATIENT
  Sex: Male

DRUGS (4)
  1. RHEUMATREX [Suspect]
     Indication: RHEUMATOID ARTHRITIS
     Dosage: 3 DF, WEEKLY
     Dates: start: 20020101
  2. ENBREL [Suspect]
     Dosage: 25 MG, WEEKLY
     Route: 058
  3. ENBREL [Suspect]
     Indication: RHEUMATOID ARTHRITIS
     Dosage: 25 MG, 2X/WEEK
     Route: 058
  4. ENBREL [Suspect]
     Dosage: 50 MG, WEEKLY
     Route: 058

REACTIONS (9)
  - OEDEMA PERIPHERAL [None]
  - BLEEDING TIME PROLONGED [None]
  - IMPAIRED HEALING [None]
  - INJECTION SITE PAIN [None]
  - NASOPHARYNGITIS [None]
  - TOOTH EXTRACTION [None]
  - PAIN IN EXTREMITY [None]
  - INFECTION SUSCEPTIBILITY INCREASED [None]
  - MALAISE [None]
